FAERS Safety Report 8963083 (Version 1)
Quarter: 2012Q4

REPORT INFORMATION
  Report Type: Spontaneous
  Country: NO (occurrence: None)
  Receive Date: 20121205
  Receipt Date: 20121205
  Transmission Date: 20130627
  Serious: Yes (Hospitalization)
  Sender: FDA-Public Use
  Company Number: NO-010196

PATIENT
  Age: 66 Year
  Sex: Female

DRUGS (3)
  1. PICOPREP [Suspect]
     Indication: BOWEL PREPARATION
     Dosage: (Oral)
     Route: 048
     Dates: start: 20120314
  2. CALCIGRAN FORTE [Concomitant]
  3. FOSAMAX [Concomitant]

REACTIONS (4)
  - Rhinorrhoea [None]
  - Vomiting [None]
  - Abdominal pain upper [None]
  - Diarrhoea [None]
